FAERS Safety Report 9133186 (Version 3)
Quarter: 2013Q2

REPORT INFORMATION
  Report Type: Spontaneous
  Country: AU (occurrence: AU)
  Receive Date: 20130301
  Receipt Date: 20130410
  Transmission Date: 20140414
  Serious: Yes (Life-Threatening, Other)
  Sender: FDA-Public Use
  Company Number: AU-ASTRAZENECA-2013SE11592

PATIENT
  Age: 81 Year
  Sex: Male

DRUGS (7)
  1. BRILINTA [Suspect]
     Indication: ACUTE CORONARY SYNDROME
     Route: 048
     Dates: start: 20130214
  2. OMEPRAZOLE [Concomitant]
     Indication: GASTROOESOPHAGEAL REFLUX DISEASE
     Route: 048
  3. RAMIPRIL [Concomitant]
     Indication: CORONARY ARTERY DISEASE
     Route: 048
  4. NICORANDIL [Concomitant]
     Indication: CORONARY ARTERY DISEASE
     Route: 048
  5. METOPROLOL [Concomitant]
     Indication: CORONARY ARTERY DISEASE
     Route: 048
  6. FUROSEMIDE [Concomitant]
     Indication: CORONARY ARTERY DISEASE
     Route: 048
  7. CLOPIDOGREL [Concomitant]
     Dates: end: 201302

REACTIONS (1)
  - Pulmonary oedema [Recovered/Resolved]
